FAERS Safety Report 13550368 (Version 1)
Quarter: 2017Q2

REPORT INFORMATION
  Report Type: Spontaneous
  Country: US (occurrence: US)
  Receive Date: 20170516
  Receipt Date: 20170516
  Transmission Date: 20170830
  Serious: Yes (Life-Threatening, Hospitalization)
  Sender: FDA-Public Use
  Company Number: None

PATIENT
  Age: 64 Year
  Sex: Male
  Weight: 110.2 kg

DRUGS (11)
  1. WARFARIN [Suspect]
     Active Substance: WARFARIN
     Indication: ATRIAL FIBRILLATION
     Dosage: CHRONIC PO
     Route: 048
  2. ECOTRIN [Suspect]
     Active Substance: ASPIRIN
     Indication: ATRIAL FIBRILLATION
     Dosage: CHRONIC 81MG DAILY PO
     Route: 048
  3. COREG [Concomitant]
     Active Substance: CARVEDILOL
  4. CENTRUM [Concomitant]
     Active Substance: VITAMINS
  5. ROCALTROL [Concomitant]
     Active Substance: CALCITRIOL
  6. ALLOPURINOL. [Concomitant]
     Active Substance: ALLOPURINOL
  7. LASIX [Concomitant]
     Active Substance: FUROSEMIDE
  8. CARDURA [Concomitant]
     Active Substance: DOXAZOSIN MESYLATE
  9. APRESOLINE HYDROCHLORIDE [Concomitant]
     Active Substance: HYDRALAZINE HYDROCHLORIDE
  10. OMEGA [Concomitant]
     Active Substance: CONVALLARIA MAJALIS\CRATAEGUS LAEVIGATA LEAF\PROXYPHYLLINE
  11. AMLODIPINE [Concomitant]
     Active Substance: AMLODIPINE BESYLATE

REACTIONS (3)
  - Cerebral haemorrhage [None]
  - Coagulopathy [None]
  - Therapy cessation [None]

NARRATIVE: CASE EVENT DATE: 20170324
